FAERS Safety Report 16444859 (Version 2)
Quarter: 2019Q2

REPORT INFORMATION
  Report Type: Spontaneous
  Country: DE (occurrence: DE)
  Receive Date: 20190618
  Receipt Date: 20190624
  Transmission Date: 20190711
  Serious: Yes (Congenital Anomaly)
  Sender: FDA-Public Use
  Company Number: DE-MYLANLABS-2019M1055610

PATIENT
  Age: 1 Day
  Sex: Female
  Weight: 3.25 kg

DRUGS (3)
  1. XANAFLU [Concomitant]
     Active Substance: INFLUENZA VIRUS VACCINE
     Indication: IMMUNISATION
     Dosage: UNK
     Route: 064
     Dates: start: 20170921, end: 20170921
  2. ESCITALOPRAM [Suspect]
     Active Substance: ESCITALOPRAM OXALATE
     Indication: DEPRESSION
     Dosage: 10 MILLIGRAM, QD
     Route: 064
     Dates: start: 20170501, end: 20171006
  3. L-THYROXIN                         /00068001/ [Concomitant]
     Active Substance: LEVOTHYROXINE
     Indication: HYPOTHYROIDISM
     Dosage: 75 MICROGRAM, QD,75 [?G/D ]
     Route: 064
     Dates: start: 20170501, end: 20171006

REACTIONS (5)
  - Foetal exposure during pregnancy [Recovered/Resolved]
  - Atrial septal defect [Unknown]
  - Congenital tracheomalacia [Recovering/Resolving]
  - Congenital laryngeal stridor [Recovering/Resolving]
  - Pectus excavatum [Not Recovered/Not Resolved]

NARRATIVE: CASE EVENT DATE: 20180130
